FAERS Safety Report 6739261-2 (Version None)
Quarter: 2010Q2

REPORT INFORMATION
  Report Type: 
  Country: None (occurrence: None)
  Receive Date: 20100525
  Receipt Date: 20100511
  Transmission Date: 20101027
  Serious: Yes (Other)
  Sender: FDA-Public Use
  Company Number: US-TYCO HEALTHCARE/MALLINCKRODT-T201001209

PATIENT

DRUGS (3)
  1. PAMELOR [Suspect]
     Indication: INSOMNIA
     Dosage: UNK
  2. LAMICTAL [Suspect]
     Indication: CONVULSION
     Dosage: 350 MG IN A.M; 200 MG AT 6:00 P.M.
     Route: 048
     Dates: start: 20080101, end: 20090101
  3. LAMOTRIGINE [Suspect]
     Indication: CONVULSION
     Dosage: UNK
     Dates: start: 20090101

REACTIONS (3)
  - CONVULSION [None]
  - DRUG INEFFECTIVE [None]
  - OFF LABEL USE [None]
